FAERS Safety Report 8189237-6 (Version None)
Quarter: 2012Q1

REPORT INFORMATION
  Report Type: 
  Country: None (occurrence: None)
  Receive Date: 20120306
  Receipt Date: 20120306
  Transmission Date: 20120608
  Serious: Yes (Hospitalization)
  Sender: FDA-Public Use
  Company Number: None

PATIENT
  Sex: Female
  Weight: 91.8 kg

DRUGS (6)
  1. TRICOR [Concomitant]
  2. FLAXSEED OIL [Concomitant]
  3. LISINOPRIL [Concomitant]
  4. AZOR [Suspect]
     Indication: HYPERTENSION
     Dosage: 1 TABLET DAILY ORAL
     Route: 048
     Dates: start: 20111128, end: 20120209
  5. HYDROCHLOROTHIAZIDE [Concomitant]
  6. CITALOPRAM HYDROBROMIDE [Concomitant]

REACTIONS (6)
  - DIALYSIS [None]
  - TREMOR [None]
  - TUBULOINTERSTITIAL NEPHRITIS [None]
  - VOMITING [None]
  - FLUID RETENTION [None]
  - RENAL FAILURE ACUTE [None]
